FAERS Safety Report 15082842 (Version 2)
Quarter: 2018Q3

REPORT INFORMATION
  Report Type: Spontaneous
  Country: US (occurrence: US)
  Receive Date: 20180628
  Receipt Date: 20180726
  Transmission Date: 20181010
  Serious: No
  Sender: FDA-Public Use
  Company Number: US-009507513-1806USA007330

PATIENT
  Sex: Male

DRUGS (3)
  1. SUTENT [Suspect]
     Active Substance: SUNITINIB MALATE
     Dosage: 28 DAYS ON/14 DAYS OFF
     Dates: start: 20170914
  2. SUTENT [Suspect]
     Active Substance: SUNITINIB MALATE
     Dosage: 2 WEEKS ON/1 WEEK OFF
  3. PRINIVIL [Suspect]
     Active Substance: LISINOPRIL
     Indication: BLOOD PRESSURE MEASUREMENT

REACTIONS (7)
  - Drug ineffective [Unknown]
  - Upper respiratory tract infection [Recovering/Resolving]
  - Lip blister [Recovering/Resolving]
  - Cough [Unknown]
  - Contusion [Unknown]
  - Blood pressure increased [Unknown]
  - Rash [Recovered/Resolved]
